FAERS Safety Report 9653386 (Version 2)
Quarter: 2013Q4

REPORT INFORMATION
  Report Type: Spontaneous
  Country: BR (occurrence: BR)
  Receive Date: 20131029
  Receipt Date: 20131223
  Transmission Date: 20140711
  Serious: Yes (Death)
  Sender: FDA-Public Use
  Company Number: BR-SA-2013SA109308

PATIENT
  Age: 66 Year
  Sex: Male

DRUGS (1)
  1. CEREZYME [Suspect]
     Indication: GAUCHER^S DISEASE
     Route: 042
     Dates: start: 20090302

REACTIONS (3)
  - Upper gastrointestinal haemorrhage [Fatal]
  - Varices oesophageal [Fatal]
  - Liver disorder [Fatal]
